FAERS Safety Report 7558445-7 (Version None)
Quarter: 2011Q2

REPORT INFORMATION
  Report Type: 
  Country: None (occurrence: None)
  Receive Date: 20110620
  Receipt Date: 20110614
  Transmission Date: 20111010
  Serious: Yes (Death, Other)
  Sender: FDA-Public Use
  Company Number: US-CELGENEUS-163-50794-10091601

PATIENT

DRUGS (3)
  1. VIDAZA [Suspect]
     Dosage: 75 MILLIGRAM/SQ. METER
     Route: 058
  2. VIDAZA [Suspect]
     Dosage: 100 MILLIGRAM/SQ. METER
     Route: 058
  3. 5-TH3 ANTAGONIST [Concomitant]
     Indication: ANTIEMETIC SUPPORTIVE CARE
     Route: 065

REACTIONS (10)
  - SEPTIC SHOCK [None]
  - PANCYTOPENIA [None]
  - FATIGUE [None]
  - PNEUMONIA [None]
  - RASH [None]
  - INJECTION SITE IRRITATION [None]
  - GASTROINTESTINAL HAEMORRHAGE [None]
  - FEBRILE NEUTROPENIA [None]
  - PERICARDIAL EFFUSION [None]
  - DECREASED APPETITE [None]
